FAERS Safety Report 24611244 (Version 2)
Quarter: 2024Q4

REPORT INFORMATION
  Report Type: Spontaneous
  Country: IN (occurrence: IN)
  Receive Date: 20241113
  Receipt Date: 20241125
  Transmission Date: 20250115
  Serious: Yes (Other)
  Sender: ARGENX BVBA
  Company Number: IN-ARGENX-2024-ARGX-IN009867

PATIENT

DRUGS (1)
  1. VYVGART [Suspect]
     Active Substance: EFGARTIGIMOD ALFA-FCAB
     Indication: Myasthenia gravis
     Route: 065

REACTIONS (6)
  - Clostridium difficile infection [Unknown]
  - Kidney infection [Recovered/Resolved]
  - Heart rate increased [Unknown]
  - Renal pain [Unknown]
  - Dyspnoea [Unknown]
  - Back pain [Unknown]
